FAERS Safety Report 5346675-4 (Version None)
Quarter: 2007Q2

REPORT INFORMATION
  Report Type: 
  Country: None (occurrence: None)
  Receive Date: 20070604
  Receipt Date: 20070518
  Transmission Date: 20071010
  Serious: Yes (Death, Other)
  Sender: FDA-Public Use
  Company Number: 2007US001274

PATIENT
  Age: 61 Year
  Sex: Male

DRUGS (4)
  1. AMBISOME [Suspect]
     Indication: PNEUMONIA
     Dosage: 80 MG, UID/QD, IV NOS
     Route: 042
     Dates: start: 20070111, end: 20070113
  2. AMILORIDE HYDROCHLORIDE [Concomitant]
  3. ACYCLOVIR [Concomitant]
  4. POTASSIUM CHLORIDE [Concomitant]

REACTIONS (7)
  - ATRIAL FIBRILLATION [None]
  - CLOSTRIDIAL INFECTION [None]
  - DERMATITIS ALLERGIC [None]
  - PNEUMONIA FUNGAL [None]
  - RASH GENERALISED [None]
  - RESPIRATORY FAILURE [None]
  - SUPRAVENTRICULAR TACHYCARDIA [None]
